FAERS Safety Report 11825734 (Version 1)
Quarter: 2015Q4

REPORT INFORMATION
  Report Type: Spontaneous
  Country: US (occurrence: US)
  Receive Date: 20151211
  Receipt Date: 20151211
  Transmission Date: 20160305
  Serious: No
  Sender: FDA-Public Use
  Company Number: US-JNJFOC-20150514563

PATIENT
  Sex: Male

DRUGS (5)
  1. IMBRUVICA [Suspect]
     Active Substance: IBRUTINIB
     Indication: CHRONIC LYMPHOCYTIC LEUKAEMIA
     Route: 048
     Dates: start: 2015, end: 2015
  2. LASIX [Concomitant]
     Active Substance: FUROSEMIDE
  3. LASIX [Concomitant]
     Active Substance: FUROSEMIDE
  4. IMBRUVICA [Suspect]
     Active Substance: IBRUTINIB
     Indication: CHRONIC LYMPHOCYTIC LEUKAEMIA
     Route: 048
     Dates: start: 20150422
  5. IMBRUVICA [Suspect]
     Active Substance: IBRUTINIB
     Indication: CHRONIC LYMPHOCYTIC LEUKAEMIA
     Route: 048
     Dates: start: 2015

REACTIONS (6)
  - Oedema peripheral [Unknown]
  - White blood cell count increased [Unknown]
  - Skin disorder [Unknown]
  - Rash [Recovering/Resolving]
  - Drug ineffective [Unknown]
  - Skin lesion [Unknown]

NARRATIVE: CASE EVENT DATE: 2015
